FAERS Safety Report 15770423 (Version 3)
Quarter: 2019Q3

REPORT INFORMATION
  Report Type: Spontaneous
  Country: US (occurrence: US)
  Receive Date: 20181228
  Receipt Date: 20190701
  Transmission Date: 20191004
  Serious: No
  Sender: FDA-Public Use
  Company Number: US-MYLANLABS-2018M1090383

PATIENT
  Sex: Female
  Weight: 48 kg

DRUGS (5)
  1. FENTANYL TRANSDERMAL SYSTEM [Suspect]
     Active Substance: FENTANYL
     Indication: BACK PAIN
     Dosage: 1 DOSAGE FORM, Q3D
     Route: 062
  2. FENTANYL TRANSDERMAL SYSTEM [Suspect]
     Active Substance: FENTANYL
     Dosage: 1 DOSAGE FORM EVERY 60 HOURS
     Route: 062
  3. FENTANYL TRANSDERMAL SYSTEM [Suspect]
     Active Substance: FENTANYL
     Dosage: 1 DOSAGE FORM, Q2D
     Route: 062
  4. FLEXERIL [Concomitant]
     Active Substance: CYCLOBENZAPRINE HYDROCHLORIDE
     Indication: MUSCLE SPASMS
     Dosage: 10 MILLIGRAM, TID
  5. PERCOCET                           /00446701/ [Concomitant]
     Active Substance: ACETAMINOPHEN\OXYCODONE HYDROCHLORIDE\OXYCODONE TEREPHTHALATE
     Indication: BREAKTHROUGH PAIN
     Dosage: UNK UNK, QID (10-325 MG UP TO FOUR TIMES A DAY  )

REACTIONS (6)
  - Hyperhidrosis [Not Recovered/Not Resolved]
  - Therapeutic product effect decreased [Not Recovered/Not Resolved]
  - Hot flush [Not Recovered/Not Resolved]
  - Tremor [Not Recovered/Not Resolved]
  - Drug screen negative [Not Recovered/Not Resolved]
  - Nervousness [Not Recovered/Not Resolved]
